FAERS Safety Report 12798620 (Version 2)
Quarter: 2016Q4

REPORT INFORMATION
  Report Type: Spontaneous
  Country: SK (occurrence: SK)
  Receive Date: 20160930
  Receipt Date: 20161019
  Transmission Date: 20170207
  Serious: Yes (Other)
  Sender: FDA-Public Use
  Company Number: SK-BAYER-2016-188420

PATIENT
  Sex: Female

DRUGS (1)
  1. MIRENA [Suspect]
     Active Substance: LEVONORGESTREL
     Dosage: 20 MCG/24HR, CONT
     Route: 015
     Dates: start: 20160905, end: 20160926

REACTIONS (3)
  - Genital haemorrhage [None]
  - Device dislocation [None]
  - Seizure [None]

NARRATIVE: CASE EVENT DATE: 201609
